FAERS Safety Report 6274463-3 (Version None)
Quarter: 2009Q3

REPORT INFORMATION
  Report Type: 
  Country: None (occurrence: None)
  Receive Date: 20090720
  Receipt Date: 20090708
  Transmission Date: 20100115
  Serious: Yes (Hospitalization, Disabling, Other)
  Sender: FDA-Public Use
  Company Number: PHHY2009SI28079

PATIENT
  Age: 60 Year
  Sex: Male

DRUGS (2)
  1. CYCLOSPORINE [Suspect]
     Indication: RENAL TRANSPLANT
     Dosage: 125 MG/DAY
  2. PREDNISONE TAB [Suspect]
     Indication: RENAL TRANSPLANT
     Dosage: 6 MG/DAY

REACTIONS (15)
  - ANIMAL SCRATCH [None]
  - ARM AMPUTATION [None]
  - BLISTER [None]
  - CELLULITIS [None]
  - CRYPTOCOCCOSIS [None]
  - DEBRIDEMENT [None]
  - INFLAMMATION OF WOUND [None]
  - LIMB OPERATION [None]
  - LYMPHADENOPATHY [None]
  - MUSCLE NECROSIS [None]
  - OEDEMA PERIPHERAL [None]
  - PYREXIA [None]
  - SOFT TISSUE NECROSIS [None]
  - WOUND COMPLICATION [None]
  - WOUND HAEMORRHAGE [None]
